FAERS Safety Report 18780402 (Version 1)
Quarter: 2021Q1

REPORT INFORMATION
  Report Type: Spontaneous
  Country: US (occurrence: US)
  Receive Date: 20210122
  Receipt Date: 20210122
  Transmission Date: 20210419
  Serious: Yes (Other)
  Sender: FDA-Public Use
  Company Number: None

PATIENT
  Age: 8 Year
  Sex: Male
  Weight: 17.9 kg

DRUGS (2)
  1. DAYTRANA [Suspect]
     Active Substance: METHYLPHENIDATE
     Indication: ATTENTION DEFICIT HYPERACTIVITY DISORDER
     Route: 003
     Dates: start: 20201216, end: 20210120
  2. DAYTRANA [Concomitant]
     Active Substance: METHYLPHENIDATE
     Dates: start: 20201216, end: 20210120

REACTIONS (1)
  - Dermatitis [None]

NARRATIVE: CASE EVENT DATE: 20201220
